FAERS Safety Report 4728507-8 (Version None)
Quarter: 2005Q3

REPORT INFORMATION
  Report Type: 
  Country: None (occurrence: None)
  Receive Date: 20050729
  Receipt Date: 20050208
  Transmission Date: 20060218
  Serious: No
  Sender: FDA-Public Use
  Company Number: US-GLAXOSMITHKLINE-A0544508A

PATIENT
  Age: 64 Year
  Sex: Male

DRUGS (9)
  1. ZANTAC [Suspect]
     Dosage: 150MG TWICE PER DAY
     Route: 048
  2. VICODIN [Concomitant]
  3. ATENOLOL [Concomitant]
  4. LEVBID [Concomitant]
  5. NORVASC [Concomitant]
  6. HYDROCHLOROTHIAZIDE [Concomitant]
  7. METAMUCIL [Concomitant]
  8. PRAVACHOL [Concomitant]
  9. LOMOTIL [Concomitant]

REACTIONS (1)
  - DRUG INEFFECTIVE [None]
